FAERS Safety Report 7590951-1 (Version None)
Quarter: 2011Q3

REPORT INFORMATION
  Report Type: 
  Country: None (occurrence: None)
  Receive Date: 20110705
  Receipt Date: 20110628
  Transmission Date: 20111222
  Serious: Yes (Death, Other)
  Sender: FDA-Public Use
  Company Number: PHHY2011JP35518

PATIENT
  Sex: Male
  Weight: 57 kg

DRUGS (2)
  1. PREDNISOLONE [Concomitant]
     Indication: EVANS SYNDROME
     Dosage: 70 MG/KG
  2. CYCLOSPORINE [Suspect]
     Indication: APLASTIC ANAEMIA
     Dosage: 200 MG DAILY
     Dates: start: 20100701, end: 20100810

REACTIONS (7)
  - ASCITES [None]
  - GASTROINTESTINAL HAEMORRHAGE [None]
  - HEPATIC MASS [None]
  - SHOCK [None]
  - LYMPHOMA [None]
  - HEPATIC FUNCTION ABNORMAL [None]
  - EPSTEIN-BARR VIRUS INFECTION [None]
